FAERS Safety Report 21451514 (Version 1)
Quarter: 2022Q4

REPORT INFORMATION
  Report Type: Spontaneous
  Country: NL (occurrence: NL)
  Receive Date: 20221013
  Receipt Date: 20221013
  Transmission Date: 20230113
  Serious: Yes (Death)
  Sender: FDA-Public Use
  Company Number: None

PATIENT
  Sex: Female

DRUGS (1)
  1. HYDROCHLOROTHIAZIDE\VALSARTAN [Suspect]
     Active Substance: HYDROCHLOROTHIAZIDE\VALSARTAN
     Indication: Hypertension
     Dosage: 1 DOSAGE FORMS DAILY; 1 DD 1, VALSARTAN/HYDROCHLOORTHIAZIDE TAB OMH 160/12.5MG / BRAND NAME NOT SPEC
     Dates: end: 2018

REACTIONS (2)
  - Ileus [Fatal]
  - Colon cancer [Fatal]
